FAERS Safety Report 5398918-9 (Version None)
Quarter: 2007Q3

REPORT INFORMATION
  Report Type: 
  Country: None (occurrence: None)
  Receive Date: 20070725
  Receipt Date: 20070725
  Transmission Date: 20080115
  Serious: No
  Sender: FDA-Public Use
  Company Number: None

PATIENT
  Sex: Male
  Weight: 84.23 kg

DRUGS (5)
  1. CYCLOPHOSPHAMINE [Suspect]
     Dosage: 1480 MG
  2. LIPOSOMAL DOXORUBICIN (DOXIL) [Suspect]
     Dosage: 78 MG
  3. PREDNISONE [Suspect]
     Dosage: 100 MG
  4. RITUXIMAB (MOAB C2B8 ANTI CD20, CHIMERIC) [Suspect]
     Dosage: 735 MG
  5. VINCRISTINE SULFATE [Suspect]
     Dosage: 2 MG

REACTIONS (1)
  - WHITE BLOOD CELL COUNT DECREASED [None]
